FAERS Safety Report 23814981 (Version 1)
Quarter: 2024Q2

REPORT INFORMATION
  Report Type: Spontaneous
  Country: US (occurrence: None)
  Receive Date: 20240502
  Receipt Date: 20240502
  Transmission Date: 20240715
  Serious: No
  Sender: FDA-Public Use
  Company Number: None

PATIENT
  Age: 76 Year
  Sex: Female

DRUGS (1)
  1. AMBRISENTAN [Suspect]
     Active Substance: AMBRISENTAN
     Dosage: 5 MG DAILY ORAL?
     Route: 048

REACTIONS (4)
  - Dyspnoea [None]
  - Peripheral swelling [None]
  - Joint swelling [None]
  - Therapy cessation [None]

NARRATIVE: CASE EVENT DATE: 20240502
